FAERS Safety Report 14011413 (Version 1)
Quarter: 2017Q3

REPORT INFORMATION
  Report Type: Spontaneous
  Country: US (occurrence: US)
  Receive Date: 20170926
  Receipt Date: 20170926
  Transmission Date: 20171128
  Serious: Yes (Other)
  Sender: FDA-Public Use
  Company Number: None

PATIENT
  Sex: Female
  Weight: 77.4 kg

DRUGS (7)
  1. METOPROLOL SUCCINATE ER [Concomitant]
     Active Substance: METOPROLOL SUCCINATE
  2. PRESERVISION AREDS 2 [Concomitant]
     Active Substance: MINERALS\VITAMINS
  3. PEPCID [Concomitant]
     Active Substance: FAMOTIDINE
  4. KISQALI [Concomitant]
     Active Substance: RIBOCICLIB
  5. IBRANCE [Suspect]
     Active Substance: PALBOCICLIB
     Indication: BREAST CANCER
     Route: 048
     Dates: start: 20170727, end: 20170925
  6. ZOCOR [Concomitant]
     Active Substance: SIMVASTATIN
  7. PROLIA [Concomitant]
     Active Substance: DENOSUMAB

REACTIONS (3)
  - Nausea [None]
  - Urinary tract infection [None]
  - Vomiting [None]
